FAERS Safety Report 10844813 (Version 2)
Quarter: 2015Q1

REPORT INFORMATION
  Report Type: Spontaneous
  Country: US (occurrence: US)
  Receive Date: 20150220
  Receipt Date: 20150226
  Transmission Date: 20150721
  Serious: No
  Sender: FDA-Public Use
  Company Number: US-MYLANLABS-2014M1002035

PATIENT
  Age: 18 Year
  Sex: Male

DRUGS (1)
  1. TRETINOIN CREAM [Suspect]
     Active Substance: TRETINOIN
     Indication: ACNE
     Dosage: UNK, QD
     Route: 061
     Dates: start: 20140811, end: 20140814

REACTIONS (2)
  - Insomnia [Not Recovered/Not Resolved]
  - Application site pain [Not Recovered/Not Resolved]

NARRATIVE: CASE EVENT DATE: 20140811
